FAERS Safety Report 5968110-5 (Version None)
Quarter: 2008Q4

REPORT INFORMATION
  Report Type: 
  Country: None (occurrence: None)
  Receive Date: 20081126
  Receipt Date: 20081119
  Transmission Date: 20090506
  Serious: Yes (Other)
  Sender: FDA-Public Use
  Company Number: US-ROCHE-598228

PATIENT
  Age: 40 Year
  Sex: Female

DRUGS (6)
  1. NAPROSYN [Suspect]
     Indication: DRUG USE FOR UNKNOWN INDICATION
     Route: 065
  2. ACCUTANE [Suspect]
     Indication: DRUG USE FOR UNKNOWN INDICATION
     Route: 065
  3. DULOXETINE [Concomitant]
  4. CETIRIZINE HYDROCHLORIDE [Concomitant]
  5. FLUOXETINE HYDROCHLORIDE [Concomitant]
  6. RISPERIDONE [Concomitant]

REACTIONS (3)
  - NO ADVERSE EVENT [None]
  - OVERDOSE [None]
  - SUICIDE ATTEMPT [None]
